FAERS Safety Report 8075330-5 (Version None)
Quarter: 2012Q1

REPORT INFORMATION
  Report Type: 
  Country: None (occurrence: None)
  Receive Date: 20120127
  Receipt Date: 20120104
  Transmission Date: 20120608
  Serious: No
  Sender: FDA-Public Use
  Company Number: US-MYLANLABS-2011S1023775

PATIENT
  Age: 77 Year
  Sex: Female
  Weight: 58.51 kg

DRUGS (2)
  1. CLONIDINE [Suspect]
     Route: 062
     Dates: start: 20101101
  2. CLONIDINE [Suspect]
     Indication: BLOOD PRESSURE INCREASED
     Dosage: QWEEK
     Route: 062
     Dates: start: 20101101

REACTIONS (4)
  - APPLICATION SITE DRYNESS [None]
  - APPLICATION SITE ERYTHEMA [None]
  - APPLICATION SITE PRURITUS [None]
  - APPLICATION SITE RASH [None]
